FAERS Safety Report 7332591-5 (Version None)
Quarter: 2011Q1

REPORT INFORMATION
  Report Type: 
  Country: None (occurrence: None)
  Receive Date: 20110304
  Receipt Date: 20110302
  Transmission Date: 20110831
  Serious: Yes (Death)
  Sender: FDA-Public Use
  Company Number: IT-ASTRAZENECA-2011SE09641

PATIENT
  Age: 19438 Day
  Sex: Female

DRUGS (4)
  1. LUXORAL [Concomitant]
     Route: 048
     Dates: start: 20110203, end: 20110218
  2. SELEDIE [Concomitant]
     Indication: DEEP VEIN THROMBOSIS
     Route: 058
     Dates: start: 20060929, end: 20110203
  3. IRESSA [Suspect]
     Indication: NON-SMALL CELL LUNG CANCER STAGE IV
     Route: 048
     Dates: start: 20101206, end: 20110218
  4. CARBAMAZEPINE [Concomitant]
     Indication: CONVULSION PROPHYLAXIS
     Route: 048
     Dates: start: 20050801, end: 20110218

REACTIONS (1)
  - EXTRADURAL HAEMATOMA [None]
